FAERS Safety Report 16984079 (Version 4)
Quarter: 2019Q4

REPORT INFORMATION
  Report Type: Report from Study
  Country: BR (occurrence: BR)
  Receive Date: 20191101
  Receipt Date: 20191129
  Transmission Date: 20200122
  Serious: Yes (Death, Life-Threatening, Other)
  Sender: FDA-Public Use
  Company Number: NVSC2019BR021982

PATIENT
  Age: 62 Year
  Sex: Male
  Weight: 88 kg

DRUGS (2)
  1. TAFINLAR [Suspect]
     Active Substance: DABRAFENIB MESYLATE
     Indication: METASTATIC MALIGNANT MELANOMA
     Dosage: UNK
     Route: 065
     Dates: start: 20190913
  2. MEKINIST [Suspect]
     Active Substance: TRAMETINIB DIMETHYL SULFOXIDE
     Indication: METASTATIC MALIGNANT MELANOMA
     Dosage: UNK
     Route: 065
     Dates: start: 20190913

REACTIONS (12)
  - Blood pressure decreased [Unknown]
  - Death [Fatal]
  - Pancreatic enzymes increased [Unknown]
  - Speech disorder [Unknown]
  - Dyspnoea [Unknown]
  - Cerebral disorder [Unknown]
  - Nosocomial infection [Recovered/Resolved]
  - Pyrexia [Unknown]
  - Medical device discomfort [Unknown]
  - Dysphagia [Not Recovered/Not Resolved]
  - Eating disorder [Unknown]
  - Coma [Unknown]

NARRATIVE: CASE EVENT DATE: 20190924
